FAERS Safety Report 15620823 (Version 1)
Quarter: 2018Q4

REPORT INFORMATION
  Report Type: Spontaneous
  Country: US (occurrence: US)
  Receive Date: 20181109
  Receipt Date: 20181109
  Transmission Date: 20190205
  Serious: Yes (Hospitalization)
  Sender: FDA-Public Use
  Company Number: None

PATIENT
  Age: 77 Year
  Sex: Female
  Weight: 64.18 kg

DRUGS (2)
  1. CARBOPLATIN. [Suspect]
     Active Substance: CARBOPLATIN
     Dates: end: 20181024
  2. ETOPOSIDE (VP-16) [Suspect]
     Active Substance: ETOPOSIDE
     Dates: end: 20181024

REACTIONS (2)
  - White blood cell count decreased [None]
  - Neutrophil count decreased [None]

NARRATIVE: CASE EVENT DATE: 20181105
